FAERS Safety Report 5871793-1 (Version None)
Quarter: 2008Q3

REPORT INFORMATION
  Report Type: 
  Country: None (occurrence: None)
  Receive Date: 20080905
  Receipt Date: 20080827
  Transmission Date: 20090109
  Serious: Yes (Hospitalization, Other)
  Sender: FDA-Public Use
  Company Number: PHBS2008HK05542

PATIENT
  Age: 22 Year
  Sex: Female

DRUGS (2)
  1. SYNTOCINON [Suspect]
  2. AMPICILLIN [Concomitant]
     Route: 042

REACTIONS (13)
  - ABSCESS [None]
  - ABSCESS DRAINAGE [None]
  - ASPIRATION PLEURAL CAVITY [None]
  - BACTEROIDES INFECTION [None]
  - BETA HAEMOLYTIC STREPTOCOCCAL INFECTION [None]
  - CAESAREAN SECTION [None]
  - CHORIOAMNIONITIS [None]
  - DYSPNOEA [None]
  - HEPATIC ENZYME INCREASED [None]
  - PLEURAL EFFUSION [None]
  - PYREXIA [None]
  - RED BLOOD CELL SEDIMENTATION RATE INCREASED [None]
  - WHITE BLOOD CELL COUNT INCREASED [None]
